FAERS Safety Report 16980829 (Version 4)
Quarter: 2021Q2

REPORT INFORMATION
  Report Type: Report from Study
  Country: US (occurrence: US)
  Receive Date: 20191031
  Receipt Date: 20210407
  Transmission Date: 20210716
  Serious: Yes (Other)
  Sender: FDA-Public Use
  Company Number: US-ASTRAZENECA-2019SF51662

PATIENT
  Age: 927 Month
  Sex: Male

DRUGS (2)
  1. TAGRISSO [Suspect]
     Active Substance: OSIMERTINIB
     Indication: NON-SMALL CELL LUNG CANCER
     Route: 048
     Dates: start: 20181003
  2. TAGRISSO [Suspect]
     Active Substance: OSIMERTINIB
     Indication: NON-SMALL CELL LUNG CANCER
     Route: 048
     Dates: start: 20181002

REACTIONS (8)
  - Decreased appetite [Not Recovered/Not Resolved]
  - Hypophagia [Unknown]
  - Dry skin [Not Recovered/Not Resolved]
  - Nail disorder [Unknown]
  - Contusion [Unknown]
  - Fatigue [Unknown]
  - Weight decreased [Unknown]
  - Neoplasm malignant [Not Recovered/Not Resolved]

NARRATIVE: CASE EVENT DATE: 201907
